FAERS Safety Report 6091919-7 (Version None)
Quarter: 2009Q1

REPORT INFORMATION
  Report Type: 
  Country: None (occurrence: None)
  Receive Date: 20090225
  Receipt Date: 20081001
  Transmission Date: 20090719
  Serious: No
  Sender: FDA-Public Use
  Company Number: A0750048A

PATIENT
  Age: 47 Year
  Sex: Female

DRUGS (3)
  1. VALTREX [Suspect]
     Dosage: 500MG FOUR TIMES PER DAY
     Route: 048
  2. VALTREX [Suspect]
     Indication: GENITAL HERPES
     Dosage: 1G THREE TIMES PER DAY
     Route: 048
     Dates: start: 20080922
  3. NO CONCURRENT MEDICATION [Concomitant]

REACTIONS (4)
  - DRUG INEFFECTIVE [None]
  - ORAL HERPES [None]
  - OROPHARYNGEAL PAIN [None]
  - THROAT TIGHTNESS [None]
